FAERS Safety Report 7227314-4 (Version None)
Quarter: 2011Q1

REPORT INFORMATION
  Report Type: 
  Country: None (occurrence: None)
  Receive Date: 20110114
  Receipt Date: 20110104
  Transmission Date: 20110831
  Serious: Yes (Hospitalization)
  Sender: FDA-Public Use
  Company Number: B0693264A

PATIENT
  Age: 27 Year
  Sex: Male

DRUGS (1)
  1. RANITIDINE [Suspect]
     Route: 065

REACTIONS (17)
  - INFLAMMATION [None]
  - ALANINE AMINOTRANSFERASE ABNORMAL [None]
  - ABDOMINAL DISCOMFORT [None]
  - CHOLESTASIS [None]
  - WHITE BLOOD CELL DISORDER [None]
  - ASPARTATE AMINOTRANSFERASE ABNORMAL [None]
  - INTERNATIONAL NORMALISED RATIO ABNORMAL [None]
  - ABDOMINAL TENDERNESS [None]
  - CHOLELITHIASIS [None]
  - FIBROSIS [None]
  - HEPATITIS [None]
  - BLOOD BILIRUBIN ABNORMAL [None]
  - BLOOD IRON ABNORMAL [None]
  - JAUNDICE [None]
  - OBESITY [None]
  - BLOOD ALKALINE PHOSPHATASE ABNORMAL [None]
  - PROTHROMBIN TIME ABNORMAL [None]
